FAERS Safety Report 8356251-7 (Version None)
Quarter: 2012Q2

REPORT INFORMATION
  Report Type: 
  Country: None (occurrence: None)
  Receive Date: 20120514
  Receipt Date: 20120503
  Transmission Date: 20120825
  Serious: Yes (Other)
  Sender: FDA-Public Use
  Company Number: US-US-EMD SERONO, INC.-7023326

PATIENT
  Sex: Female
  Weight: 61 kg

DRUGS (3)
  1. FLU VACCINE [Concomitant]
     Indication: ANTIVIRAL PROPHYLAXIS
     Dates: start: 20100901
  2. REBIF [Suspect]
     Indication: MULTIPLE SCLEROSIS
     Route: 058
     Dates: start: 20090730
  3. CELEXA [Concomitant]
     Indication: DEPRESSION

REACTIONS (5)
  - THERMAL BURN [None]
  - CELLULITIS [None]
  - STAPHYLOCOCCAL INFECTION [None]
  - MUSCULAR WEAKNESS [None]
  - INFLUENZA [None]
